FAERS Safety Report 5634421-6 (Version None)
Quarter: 2008Q1

REPORT INFORMATION
  Report Type: 
  Country: None (occurrence: None)
  Receive Date: 20080222
  Receipt Date: 20080211
  Transmission Date: 20080703
  Serious: Yes (Hospitalization)
  Sender: FDA-Public Use
  Company Number: FR-BRISTOL-MYERS SQUIBB COMPANY-14082663

PATIENT
  Age: 61 Year
  Sex: Male

DRUGS (3)
  1. ENDOXAN [Suspect]
     Indication: WEGENER'S GRANULOMATOSIS
     Route: 042
     Dates: start: 20080107, end: 20080107
  2. UROMITEXAN [Suspect]
     Indication: WEGENER'S GRANULOMATOSIS
     Route: 042
     Dates: start: 20080107, end: 20080107
  3. ZOPHREN [Suspect]
     Indication: WEGENER'S GRANULOMATOSIS
     Route: 048
     Dates: start: 20080107, end: 20080107

REACTIONS (2)
  - COMA [None]
  - MIOSIS [None]
